FAERS Safety Report 14616812 (Version 2)
Quarter: 2018Q2

REPORT INFORMATION
  Report Type: Spontaneous
  Country: PL (occurrence: PL)
  Receive Date: 20180309
  Receipt Date: 20180413
  Transmission Date: 20180711
  Serious: Yes (Hospitalization)
  Sender: FDA-Public Use
  Company Number: PL-SUN PHARMACEUTICAL INDUSTRIES LTD-2018RR-165644

PATIENT
  Age: 17 Year
  Sex: Female

DRUGS (3)
  1. AXOTRET [Suspect]
     Active Substance: ISOTRETINOIN
     Indication: ACNE
     Dosage: 40 MG, DAILY
     Route: 048
     Dates: start: 20171001, end: 20180208
  2. LEVEBON [Concomitant]
     Indication: PRODUCT USED FOR UNKNOWN INDICATION
     Dosage: FOR THE FEW YEARS
     Route: 065
  3. SETALOFT [Concomitant]
     Indication: PRODUCT USED FOR UNKNOWN INDICATION
     Dosage: UNK
     Route: 065
     Dates: start: 201801

REACTIONS (3)
  - Lower gastrointestinal haemorrhage [Unknown]
  - Hepatic enzyme increased [Unknown]
  - Proctitis ulcerative [Unknown]

NARRATIVE: CASE EVENT DATE: 20180209
